FAERS Safety Report 4778975-0 (Version None)
Quarter: 2005Q3

REPORT INFORMATION
  Report Type: 
  Country: None (occurrence: None)
  Receive Date: 20050922
  Receipt Date: 20050914
  Transmission Date: 20060218
  Serious: Yes (Death)
  Sender: FDA-Public Use
  Company Number: 02100-JPN-05-0452

PATIENT
  Age: 61 Year
  Sex: Male

DRUGS (4)
  1. CILOSTAZOL [Suspect]
     Indication: ACUTE MYOCARDIAL INFARCTION
     Dosage: 200 MG ORAL
     Route: 048
     Dates: start: 20040921
  2. ASPIRIN [Concomitant]
  3. CLOPIDOGREL [Concomitant]
  4. CARVEDILOL [Concomitant]

REACTIONS (4)
  - ARRHYTHMIA [None]
  - MYOCARDIAL INFARCTION [None]
  - SUDDEN CARDIAC DEATH [None]
  - THROMBOSIS IN DEVICE [None]
